FAERS Safety Report 15217859 (Version 1)
Quarter: 2018Q4

REPORT INFORMATION
  Report Type: Spontaneous
  Country: US (occurrence: US)
  Receive Date: 20180730
  Receipt Date: 20180730
  Transmission Date: 20190204
  Serious: No
  Sender: FDA-Public Use
  Company Number: US-DENTSPLY PHARMACEUTICAL-2018SCDP000155

PATIENT
  Age: 52 Year
  Sex: Female

DRUGS (3)
  1. LIDOCAINE HCL [Suspect]
     Active Substance: LIDOCAINE HYDROCHLORIDE
     Indication: LOCAL ANAESTHESIA
     Dosage: UNK
     Route: 057
  2. BENOXINATE /00355201/ [Suspect]
     Active Substance: BENOXINATE
     Indication: LOCAL ANAESTHESIA
     Dosage: UNK
  3. TETRACAINE. [Concomitant]
     Active Substance: TETRACAINE
     Indication: LOCAL ANAESTHESIA
     Dosage: UNK
     Route: 061

REACTIONS (6)
  - Hypersensitivity [Unknown]
  - Fatigue [Unknown]
  - Dyspnoea [Unknown]
  - Confusional state [Unknown]
  - Throat tightness [Unknown]
  - Urticaria [Unknown]

NARRATIVE: CASE EVENT DATE: 201302
